FAERS Safety Report 9745815 (Version 1)
Quarter: 2013Q4

REPORT INFORMATION
  Report Type: Spontaneous
  Country: CA (occurrence: CA)
  Receive Date: 20131211
  Receipt Date: 20131211
  Transmission Date: 20140711
  Serious: Yes (Other)
  Sender: FDA-Public Use
  Company Number: CA-B.I. PHARMACEUTICALS,INC./RIDGEFIELD-2013-BI-40838CN

PATIENT
  Age: 60 Year
  Sex: Male

DRUGS (4)
  1. PRADAX [Suspect]
  2. TASIGNA [Suspect]
     Dosage: 600 MG
     Route: 048
  3. ANTI-HYPERTENSIVE MEDICATION(S) [Concomitant]
  4. CRESTOR [Concomitant]

REACTIONS (3)
  - Diabetes mellitus [Unknown]
  - Feeling hot [Unknown]
  - Rash generalised [Unknown]
